FAERS Safety Report 5142495-4 (Version None)
Quarter: 2006Q4

REPORT INFORMATION
  Report Type: 
  Country: None (occurrence: None)
  Receive Date: 20061102
  Receipt Date: 20061027
  Transmission Date: 20070319
  Serious: Yes (Hospitalization)
  Sender: FDA-Public Use
  Company Number: DE-SANOFI-SYNTHELABO-F04200600217

PATIENT
  Sex: Male

DRUGS (3)
  1. FOLINIC ACID [Suspect]
     Indication: COLON CANCER
     Route: 041
     Dates: start: 20061001
  2. FLUOROURACIL [Suspect]
     Indication: COLON CANCER
     Route: 041
     Dates: start: 20061001
  3. ELOXATIN [Suspect]
     Indication: COLON CANCER
     Route: 041
     Dates: start: 20061001

REACTIONS (2)
  - DYSPNOEA [None]
  - PLEURAL EFFUSION [None]
